FAERS Safety Report 12531149 (Version 1)
Quarter: 2016Q3

REPORT INFORMATION
  Report Type: Spontaneous
  Country: US (occurrence: None)
  Receive Date: 20160705
  Receipt Date: 20160705
  Transmission Date: 20161109
  Serious: Yes (Other)
  Sender: FDA-Public Use
  Company Number: None

PATIENT
  Age: 51 Year
  Sex: Male
  Weight: 125 kg

DRUGS (1)
  1. INSULIN SYRINGE SAFETY-LOK SYRINGE WITH NEEDLE [Suspect]
     Active Substance: INSULIN HUMAN

REACTIONS (1)
  - Injury associated with device [None]

NARRATIVE: CASE EVENT DATE: 20150703
